FAERS Safety Report 24869927 (Version 3)
Quarter: 2025Q1

REPORT INFORMATION
  Report Type: Report from Study
  Country: US (occurrence: US)
  Receive Date: 20250121
  Receipt Date: 20250225
  Transmission Date: 20250408
  Serious: Yes (Other)
  Sender: PFIZER
  Company Number: US-PFIZER INC-202500013290

PATIENT
  Age: 63 Year
  Sex: Male

DRUGS (35)
  1. INLYTA [Suspect]
     Active Substance: AXITINIB
     Indication: Renal cell carcinoma
     Dosage: 5 MG, 2X/DAY
     Route: 048
     Dates: start: 20241213
  2. INLYTA [Suspect]
     Active Substance: AXITINIB
     Indication: Bone cancer
     Dates: start: 20250103, end: 20250117
  3. INLYTA [Suspect]
     Active Substance: AXITINIB
     Dosage: 1MG; TAKE 3 TABLETS BY MOUTH EVERY 12 HOURS
     Route: 048
     Dates: start: 202408
  4. ADVIL [Concomitant]
     Active Substance: IBUPROFEN
  5. KEYTRUDA [Concomitant]
     Active Substance: PEMBROLIZUMAB
  6. AMLODIPINE BESYLATE [Concomitant]
     Active Substance: AMLODIPINE BESYLATE
  7. BENAZEPRIL HYDROCHLORIDE AND HYDROCHLOROTHIAZIDE [Concomitant]
     Active Substance: BENAZEPRIL HYDROCHLORIDE\HYDROCHLOROTHIAZIDE
  8. LEVOTHYROXINE [Concomitant]
     Active Substance: LEVOTHYROXINE
  9. BUPROPION [Concomitant]
     Active Substance: BUPROPION
  10. FINASTERIDE [Concomitant]
     Active Substance: FINASTERIDE
  11. CLONAZEPAM [Concomitant]
     Active Substance: CLONAZEPAM
  12. AMLODIPINE BESYLATE\BENAZEPRIL HYDROCHLORIDE [Concomitant]
     Active Substance: AMLODIPINE BESYLATE\BENAZEPRIL HYDROCHLORIDE
  13. AMLODIPINE BESYLATE\BENAZEPRIL HYDROCHLORIDE [Concomitant]
     Active Substance: AMLODIPINE BESYLATE\BENAZEPRIL HYDROCHLORIDE
  14. CELECOXIB [Concomitant]
     Active Substance: CELECOXIB
  15. GRANISETRON [Concomitant]
     Active Substance: GRANISETRON
  16. GRANISETRON [Concomitant]
     Active Substance: GRANISETRON
  17. ACETAMINOPHEN\HYDROCODONE BITARTRATE [Concomitant]
     Active Substance: ACETAMINOPHEN\HYDROCODONE BITARTRATE
  18. INFLECTRA [Concomitant]
     Active Substance: INFLIXIMAB-DYYB
  19. KENALOG [Concomitant]
     Active Substance: TRIAMCINOLONE ACETONIDE
  20. LISINOPRIL [Concomitant]
     Active Substance: LISINOPRIL
  21. METHOCARBAMOL [Concomitant]
     Active Substance: METHOCARBAMOL
  22. METHYLPREDNISOLONE SODIUM SUCCINATE [Concomitant]
     Active Substance: METHYLPREDNISOLONE SODIUM SUCCINATE
  23. LEVOTHYROXINE [Concomitant]
     Active Substance: LEVOTHYROXINE
  24. MORPHINE SULFATE [Concomitant]
     Active Substance: MORPHINE SULFATE
  25. ONDANSETRON [Concomitant]
     Active Substance: ONDANSETRON
  26. PREDNISONE [Concomitant]
     Active Substance: PREDNISONE
  27. PROCHLORPERAZINE MALEATE [Concomitant]
     Active Substance: PROCHLORPERAZINE MALEATE
  28. SKYRIZI [Concomitant]
     Active Substance: RISANKIZUMAB-RZAA
  29. WELLBUTRIN [Concomitant]
     Active Substance: BUPROPION HYDROCHLORIDE
  30. CERAVET [Concomitant]
  31. KYTRIL [Concomitant]
     Active Substance: GRANISETRON HYDROCHLORIDE
     Indication: Nausea
  32. KYTRIL [Concomitant]
     Active Substance: GRANISETRON HYDROCHLORIDE
     Indication: Vomiting
  33. AQUAFOR [Concomitant]
  34. LENVATINIB [Concomitant]
     Active Substance: LENVATINIB
  35. BUPROPION HYDROCHLORIDE [Concomitant]
     Active Substance: BUPROPION HYDROCHLORIDE

REACTIONS (6)
  - Mouth ulceration [Not Recovered/Not Resolved]
  - Stomatitis [Not Recovered/Not Resolved]
  - Dysphonia [Not Recovered/Not Resolved]
  - Pain [Not Recovered/Not Resolved]
  - Gastrointestinal disorder [Unknown]
  - Palmar-plantar erythrodysaesthesia syndrome [Unknown]

NARRATIVE: CASE EVENT DATE: 20250103
